FAERS Safety Report 20580015 (Version 1)
Quarter: 2022Q1

REPORT INFORMATION
  Report Type: Spontaneous
  Country: US (occurrence: US)
  Receive Date: 20220310
  Receipt Date: 20220310
  Transmission Date: 20220423
  Serious: Yes (Hospitalization)
  Sender: FDA-Public Use
  Company Number: US-MannKind Corporation-2022MK000042

PATIENT
  Age: 58 Year
  Sex: Female
  Weight: 72.640 kg

DRUGS (4)
  1. AFREZZA [Suspect]
     Active Substance: INSULIN HUMAN
     Indication: Type 1 diabetes mellitus
  2. AFREZZA [Suspect]
     Active Substance: INSULIN HUMAN
  3. TRESIBA [Concomitant]
     Active Substance: INSULIN DEGLUDEC
     Indication: Type 1 diabetes mellitus
     Dates: end: 202108
  4. BASAGLAR [Concomitant]
     Active Substance: INSULIN GLARGINE
     Indication: Type 1 diabetes mellitus
     Dates: start: 202108

REACTIONS (1)
  - Leg amputation [Recovered/Resolved]

NARRATIVE: CASE EVENT DATE: 20200901
